FAERS Safety Report 20568670 (Version 1)
Quarter: 2022Q1

REPORT INFORMATION
  Report Type: Spontaneous
  Country: FR (occurrence: None)
  Receive Date: 20220308
  Receipt Date: 20220308
  Transmission Date: 20220423
  Serious: Yes (Other)
  Sender: FDA-Public Use
  Company Number: FR-Merck Healthcare KGaA-9304312

PATIENT
  Age: 69 Year
  Sex: Male

DRUGS (1)
  1. BAVENCIO [Suspect]
     Active Substance: AVELUMAB
     Indication: Transitional cell carcinoma

REACTIONS (2)
  - Atrioventricular block [Unknown]
  - Hepatotoxicity [Unknown]
